FAERS Safety Report 7111049-2 (Version None)
Quarter: 2010Q4

REPORT INFORMATION
  Report Type: 
  Country: None (occurrence: None)
  Receive Date: 20101112
  Receipt Date: 20101102
  Transmission Date: 20110411
  Serious: Yes (Hospitalization)
  Sender: FDA-Public Use
  Company Number: 8054538

PATIENT
  Sex: Female
  Weight: 46 kg

DRUGS (11)
  1. CERTOLIZUMAB PEGOL [Suspect]
     Indication: CROHN'S DISEASE
     Dosage: 400 MG 1X/MONTH SUBCUTANEOUS
     Route: 058
     Dates: start: 20090831, end: 20090914
  2. PREDNISONE [Concomitant]
  3. CALCIUM WITH VITAMIN D [Concomitant]
  4. MULTI-VITAMINS [Concomitant]
  5. ACETAMINOPHEN [Concomitant]
  6. ALBUMIN (HUMAN) [Concomitant]
  7. ASPIRIN [Concomitant]
  8. CALCIUM CITRATE W/VITAMIN D [Concomitant]
  9. COUMADIN [Concomitant]
  10. VASOTEC [Concomitant]
  11. CALCIUM WITH VITAMIN D [Concomitant]

REACTIONS (6)
  - ABDOMINAL ABSCESS [None]
  - DEEP VEIN THROMBOSIS [None]
  - HYPERTENSION [None]
  - LARGE INTESTINE PERFORATION [None]
  - PELVIC ABSCESS [None]
  - PULMONARY EMBOLISM [None]
